FAERS Safety Report 8179287-8 (Version None)
Quarter: 2012Q1

REPORT INFORMATION
  Report Type: 
  Country: None (occurrence: None)
  Receive Date: 20120229
  Receipt Date: 20120229
  Transmission Date: 20120608
  Serious: No
  Sender: FDA-Public Use
  Company Number: None

PATIENT
  Sex: Female
  Weight: 52.6173 kg

DRUGS (2)
  1. DOXYCYCLINE [Suspect]
     Indication: PRURITUS
     Dosage: 1 CAPSULE 2 TIMES DAILY
     Dates: start: 20110729
  2. DOXYCYCLINE [Suspect]
     Indication: ERYTHEMA
     Dosage: 1 CAPSULE 2 TIMES DAILY
     Dates: start: 20110729

REACTIONS (1)
  - DRUG INEFFECTIVE [None]
